FAERS Safety Report 16993639 (Version 1)
Quarter: 2019Q4

REPORT INFORMATION
  Report Type: Spontaneous
  Country: US (occurrence: US)
  Receive Date: 20191105
  Receipt Date: 20191105
  Transmission Date: 20200122
  Serious: No
  Sender: FDA-Public Use
  Company Number: US-CELGENEUS-USA-20191010120

PATIENT
  Age: 67 Year
  Sex: Female

DRUGS (5)
  1. BISOPROLOL HYDROCHLOROTHIZIDE [Concomitant]
     Indication: HYPERTENSION
     Dosage: 5 MG - 6.25 MG
     Route: 065
  2. LISINOPRIL. [Concomitant]
     Active Substance: LISINOPRIL
     Indication: HYPERTENSION
     Route: 048
  3. MULTIVITAMIN [Concomitant]
     Active Substance: VITAMINS
     Indication: NUTRITIONAL SUPPLEMENTATION
     Route: 048
  4. TRIAMTERENE HYDROCHOLOTHIAZIDE [Concomitant]
     Indication: HYPERTENSION
     Dosage: 37.5 MG - 25 MG
     Route: 048
  5. OTEZLA [Suspect]
     Active Substance: APREMILAST
     Indication: PSORIASIS
     Dosage: 60 MILLIGRAM
     Route: 048
     Dates: start: 20190506, end: 20191026

REACTIONS (1)
  - Diarrhoea [Recovering/Resolving]

NARRATIVE: CASE EVENT DATE: 20191026
